FAERS Safety Report 10022155 (Version 2)
Quarter: 2014Q2

REPORT INFORMATION
  Report Type: Report from Study
  Country: US (occurrence: US)
  Receive Date: 20140319
  Receipt Date: 20140528
  Transmission Date: 20141212
  Serious: Yes (Hospitalization)
  Sender: FDA-Public Use
  Company Number: US-GLAXOSMITHKLINE-A1065650A

PATIENT
  Age: 10 Year
  Sex: Female
  Weight: 46.2 kg

DRUGS (3)
  1. TOPOTECAN HYDROCHLORIDE [Suspect]
     Indication: EWING^S SARCOMA
     Dosage: .75MGM2 CYCLIC
     Route: 042
     Dates: start: 20131122
  2. CRIZOTINIB [Suspect]
     Indication: EWING^S SARCOMA
     Dosage: 215MGM2 CYCLIC
     Route: 048
     Dates: start: 20131122
  3. CYCLOPHOSPHAMIDE [Suspect]
     Indication: EWING^S SARCOMA
     Dosage: 250MGM2 CYCLIC
     Route: 042
     Dates: start: 20131122

REACTIONS (1)
  - Dehydration [Recovered/Resolved]
